FAERS Safety Report 8980646 (Version 2)
Quarter: 2013Q1

REPORT INFORMATION
  Report Type: Report from Study
  Country: NZ (occurrence: NZ)
  Receive Date: 20121221
  Receipt Date: 20130225
  Transmission Date: 20140127
  Serious: Yes (Other)
  Sender: FDA-Public Use
  Company Number: PHHY2012NZ117914

PATIENT
  Age: 49 Year
  Sex: Female

DRUGS (13)
  1. CLOZARIL [Suspect]
     Indication: SCHIZOAFFECTIVE DISORDER
     Dosage: 300 MG, UNK
     Dates: start: 20000111
  2. PREDNISONE [Concomitant]
  3. CITALOPRAM [Concomitant]
  4. CLONIDINE [Concomitant]
  5. SIMVASTATIN [Concomitant]
  6. FERROGRADUMET [Concomitant]
  7. VALPROATE SODIUM [Concomitant]
  8. LESCOL [Concomitant]
  9. HYDROXYCHLOROQUINE [Concomitant]
  10. CHOLECALCIFEROL [Concomitant]
  11. CALCIUM CARBONATE [Concomitant]
  12. CODEINE PHOSPHATE [Concomitant]
  13. PARACETAMOL [Concomitant]

REACTIONS (8)
  - Cholelithiasis [Unknown]
  - Arthralgia [Unknown]
  - C-reactive protein increased [Not Recovered/Not Resolved]
  - Blood alkaline phosphatase increased [Not Recovered/Not Resolved]
  - Gamma-glutamyltransferase increased [Not Recovered/Not Resolved]
  - Red blood cell sedimentation rate increased [Unknown]
  - Alanine aminotransferase increased [Not Recovered/Not Resolved]
  - Haemoglobin decreased [Recovering/Resolving]
